FAERS Safety Report 9018071 (Version 1)
Quarter: 2013Q1

REPORT INFORMATION
  Report Type: Spontaneous
  Country: US (occurrence: None)
  Receive Date: 20130117
  Receipt Date: 20130117
  Transmission Date: 20140127
  Serious: Yes (Other)
  Sender: FDA-Public Use
  Company Number: None

PATIENT
  Age: 66 Year
  Sex: Female
  Weight: 68.95 kg

DRUGS (1)
  1. METHYLPREDNISOLONE [Suspect]
     Indication: MENINGITIS FUNGAL
     Dates: start: 20111003

REACTIONS (6)
  - Renal disorder [None]
  - Alopecia [None]
  - Rash [None]
  - Nausea [None]
  - Blood urine present [None]
  - Haematochezia [None]
